FAERS Safety Report 6405579-6 (Version None)
Quarter: 2009Q4

REPORT INFORMATION
  Report Type: 
  Country: None (occurrence: None)
  Receive Date: 20091014
  Receipt Date: 20091008
  Transmission Date: 20100525
  Serious: Yes (Other)
  Sender: FDA-Public Use
  Company Number: 2009011296

PATIENT
  Sex: Female

DRUGS (1)
  1. TREANDA [Suspect]
     Indication: CHRONIC LYMPHOCYTIC LEUKAEMIA
     Dosage: (100MG/M2), INTRAVENOUS
     Route: 042

REACTIONS (2)
  - APLASTIC ANAEMIA [None]
  - PANCYTOPENIA [None]
